FAERS Safety Report 6846083-0 (Version None)
Quarter: 2010Q3

REPORT INFORMATION
  Report Type: 
  Country: None (occurrence: None)
  Receive Date: 20100715
  Receipt Date: 20080207
  Transmission Date: 20110219
  Serious: Yes (Other)
  Sender: FDA-Public Use
  Company Number: US-PFIZER INC-2007074401

PATIENT
  Sex: Male
  Weight: 87.727 kg

DRUGS (4)
  1. CHANTIX [Suspect]
     Indication: SMOKING CESSATION THERAPY
     Dates: start: 20070826
  2. ALL OTHER THERAPEUTIC PRODUCTS [Concomitant]
  3. LAMICTAL [Concomitant]
  4. CYPROHEPTADINE HCL [Concomitant]

REACTIONS (4)
  - ABNORMAL DREAMS [None]
  - CONSTIPATION [None]
  - FLATULENCE [None]
  - HEADACHE [None]
